FAERS Safety Report 9988263 (Version 1)
Quarter: 2014Q1

REPORT INFORMATION
  Report Type: Spontaneous
  Country: US (occurrence: US)
  Receive Date: 20140310
  Receipt Date: 20140310
  Transmission Date: 20141002
  Serious: Yes (Death)
  Sender: FDA-Public Use
  Company Number: US-ROCHE-1362139

PATIENT
  Age: 84 Year
  Sex: Female

DRUGS (6)
  1. XELODA [Suspect]
     Indication: SMALL INTESTINE CARCINOMA
     Route: 048
     Dates: start: 20140201, end: 20140301
  2. ASPIRIN [Concomitant]
  3. LISINOPRIL [Concomitant]
  4. MAXIDEX [Concomitant]
  5. TOPROL [Concomitant]
  6. POTASSIUM CHLORIDE [Concomitant]

REACTIONS (1)
  - Death [Fatal]
